FAERS Safety Report 24756055 (Version 4)
Quarter: 2025Q3

REPORT INFORMATION
  Report Type: Report from Study
  Country: US (occurrence: US)
  Receive Date: 20241219
  Receipt Date: 20250813
  Transmission Date: 20251020
  Serious: Yes (Other)
  Sender: AMGEN
  Company Number: US-AMGEN-USASP2024247455

PATIENT
  Age: 67 Year
  Sex: Female

DRUGS (3)
  1. PROLIA [Suspect]
     Active Substance: DENOSUMAB
     Indication: Product used for unknown indication
     Dosage: UNK, QMO
     Route: 058
     Dates: start: 202404, end: 2025
  2. EVENITY [Suspect]
     Active Substance: ROMOSOZUMAB-AQQG
     Indication: Product used for unknown indication
     Dosage: UNK, QMO
     Route: 058
     Dates: start: 202503
  3. FOSAMAX [Concomitant]
     Active Substance: ALENDRONATE SODIUM

REACTIONS (19)
  - Multiple fractures [Unknown]
  - Decreased immune responsiveness [Unknown]
  - COVID-19 [Unknown]
  - Chemical burn [Unknown]
  - Sensitive skin [Unknown]
  - Wound haemorrhage [Unknown]
  - Inflammation [Unknown]
  - Impaired healing [Unknown]
  - Injection site erythema [Unknown]
  - Injury [Unknown]
  - Pelvic organ prolapse [Unknown]
  - Device related infection [Unknown]
  - Injection site pruritus [Unknown]
  - Kyphosis [Unknown]
  - Lumbar spinal stenosis [Unknown]
  - Injection site pain [Unknown]
  - Hypoaesthesia [Unknown]
  - Paraesthesia [Unknown]
  - Off label use [Unknown]

NARRATIVE: CASE EVENT DATE: 20240401
